FAERS Safety Report 4685801-7 (Version None)
Quarter: 2005Q2

REPORT INFORMATION
  Report Type: 
  Country: None (occurrence: None)
  Receive Date: 20050602
  Receipt Date: 20050602
  Transmission Date: 20051028
  Serious: Yes (Other)
  Sender: FDA-Public Use
  Company Number: None

PATIENT
  Age: 77 Year
  Sex: Female
  Weight: 58 kg

DRUGS (5)
  1. VITAMIN K ABBOTT 10 MG [Suspect]
     Indication: INTERNATIONAL NORMALISED RATIO INCREASED
     Dosage: 10 MG IVPB
     Route: 042
  2. POTASSIUM CHLORIDE [Concomitant]
  3. FUROSEMIDE [Concomitant]
  4. NORMAL SALINE [Concomitant]
  5. ACETAMINOPHEN [Concomitant]

REACTIONS (5)
  - CYANOSIS [None]
  - EYE ROLLING [None]
  - INFUSION RELATED REACTION [None]
  - MEMORY IMPAIRMENT [None]
  - OXYGEN SATURATION DECREASED [None]
